FAERS Safety Report 19398029 (Version 2)
Quarter: 2021Q2

REPORT INFORMATION
  Report Type: Spontaneous
  Country: US (occurrence: US)
  Receive Date: 20210610
  Receipt Date: 20210621
  Transmission Date: 20210717
  Serious: Yes (Other)
  Sender: FDA-Public Use
  Company Number: US-TEVA-2021-US-1920092

PATIENT
  Age: 3 Month
  Sex: Female

DRUGS (3)
  1. METHOTREXATE. [Suspect]
     Active Substance: METHOTREXATE
     Indication: GLYCOGEN STORAGE DISEASE TYPE II
     Dosage: 0.4MG/KG THREE CYCLES OF LOW?DOSE; THREE DOSES PER CYCLE
     Route: 065
  2. RITUXIMAB. [Suspect]
     Active Substance: RITUXIMAB
     Indication: GLYCOGEN STORAGE DISEASE TYPE II
     Dosage: 375 MG/M2 ONCE IN A WEEK FOR FOUR DOSES
     Route: 042
  3. IMMUNE?GLOBULIN [Concomitant]
     Indication: IMMUNOMODULATORY THERAPY
     Dosage: 500MG/KG ONCE IN A MONTH
     Route: 042

REACTIONS (5)
  - Enterococcal infection [Unknown]
  - Enterococcal bacteraemia [Unknown]
  - Pseudomonal bacteraemia [Unknown]
  - Pseudomonas infection [Unknown]
  - Vascular device infection [Unknown]
